FAERS Safety Report 4651882-X (Version None)
Quarter: 2005Q2

REPORT INFORMATION
  Report Type: 
  Country: None (occurrence: None)
  Receive Date: 20050504
  Receipt Date: 20050423
  Transmission Date: 20051028
  Serious: Yes (Other)
  Sender: FDA-Public Use
  Company Number: FR-GLAXOSMITHKLINE-B0379175A

PATIENT
  Age: 50 Year
  Sex: Male

DRUGS (1)
  1. ZOVIRAX [Suspect]
     Route: 047
     Dates: start: 20050416, end: 20050423

REACTIONS (4)
  - EYE IRRITATION [None]
  - EYE PAIN [None]
  - INCORRECT ROUTE OF DRUG ADMINISTRATION [None]
  - VISUAL ACUITY REDUCED [None]
